FAERS Safety Report 9624773 (Version 1)
Quarter: 2013Q4

REPORT INFORMATION
  Report Type: Report from Study
  Country: BR (occurrence: BR)
  Receive Date: 20131015
  Receipt Date: 20131015
  Transmission Date: 20140711
  Serious: Yes (Other)
  Sender: FDA-Public Use
  Company Number: BR-ROCHE-1288325

PATIENT
  Age: 60 Year
  Sex: Male
  Weight: 76 kg

DRUGS (6)
  1. INTERFERON ALFA-2A [Suspect]
     Indication: CHRONIC HEPATITIS C
     Route: 065
     Dates: start: 20040201
  2. RIBAVIRIN [Suspect]
     Indication: CHRONIC HEPATITIS C
     Route: 065
     Dates: start: 20040201
  3. RIBAVIRIN [Suspect]
     Route: 065
     Dates: start: 20060303
  4. RIBAVIRIN [Suspect]
     Route: 065
     Dates: start: 20110901
  5. PEGINTERFERON ALFA-2B [Suspect]
     Indication: CHRONIC HEPATITIS C
     Route: 065
     Dates: start: 20060303
  6. PEG-INTERFERON ALFA 2A [Concomitant]
     Route: 065
     Dates: start: 20110901

REACTIONS (1)
  - Hepatitis C [Unknown]
